FAERS Safety Report 5008000-8 (Version None)
Quarter: 2006Q2

REPORT INFORMATION
  Report Type: 
  Country: None (occurrence: None)
  Receive Date: 20060404
  Receipt Date: 20050309
  Transmission Date: 20061013
  Serious: Yes (Other)
  Sender: FDA-Public Use
  Company Number: 2005042537

PATIENT
  Age: 14 Year
  Sex: Male

DRUGS (4)
  1. GEODON [Suspect]
     Indication: BIPOLAR DISORDER
     Dosage: 120 MG (60 MG, 2 IN 1 D), ORAL
     Route: 048
  2. ESCITALOPRAM (ESCITALOPRAM) [Concomitant]
  3. LITHIUM (LITHIUM) [Concomitant]
  4. LITHIUM CARBONATE [Concomitant]

REACTIONS (1)
  - TORTICOLLIS [None]
